FAERS Safety Report 24342817 (Version 1)
Quarter: 2024Q3

REPORT INFORMATION
  Report Type: Spontaneous
  Country: BR (occurrence: BR)
  Receive Date: 20240920
  Receipt Date: 20240920
  Transmission Date: 20241017
  Serious: Yes (Other)
  Sender: BAYER
  Company Number: BR-MLMSERVICE-20240906-PI185737-00099-1

PATIENT
  Age: 32 Year
  Sex: Male
  Weight: 95 kg

DRUGS (5)
  1. CIPRO [Suspect]
     Active Substance: CIPROFLOXACIN HYDROCHLORIDE
     Dosage: 500 MG, BID
     Route: 048
  2. PREDNISONE [Concomitant]
     Active Substance: PREDNISONE
     Dosage: 20 MG
     Route: 048
  3. AZITHROMYCIN [Concomitant]
     Active Substance: AZITHROMYCIN
     Dosage: 1 G, QD
     Route: 048
  4. KETOPROFEN [Concomitant]
     Active Substance: KETOPROFEN
     Dosage: 150 MG
     Route: 048
  5. Quadriderm [Concomitant]
     Dosage: 20 G
     Route: 061

REACTIONS (3)
  - Toxicity to various agents [Unknown]
  - Tendon disorder [Unknown]
  - Neuropathy peripheral [Unknown]
